FAERS Safety Report 5934582-5 (Version None)
Quarter: 2008Q4

REPORT INFORMATION
  Report Type: 
  Country: None (occurrence: None)
  Receive Date: 20081029
  Receipt Date: 20081017
  Transmission Date: 20090506
  Serious: Yes (Other)
  Sender: FDA-Public Use
  Company Number: ES-PFIZER INC-2008087150

PATIENT
  Age: 50 Year
  Sex: Male

DRUGS (1)
  1. LYRICA [Suspect]
     Route: 048
     Dates: start: 20050101, end: 20080101

REACTIONS (2)
  - RETINAL TOXICITY [None]
  - VISUAL FIELD DEFECT [None]
